FAERS Safety Report 25621593 (Version 1)
Quarter: 2025Q3

REPORT INFORMATION
  Report Type: Spontaneous
  Country: CA (occurrence: CA)
  Receive Date: 20250730
  Receipt Date: 20250730
  Transmission Date: 20251020
  Serious: Yes (Hospitalization, Other)
  Sender: RANBAXY
  Company Number: CA-SUN PHARMACEUTICAL INDUSTRIES LTD-2025R1-519519

PATIENT
  Age: 80 Year
  Sex: Male

DRUGS (4)
  1. ENZALUTAMIDE [Interacting]
     Active Substance: ENZALUTAMIDE
     Indication: Prostate cancer metastatic
     Route: 065
  2. DILTIAZEM [Interacting]
     Active Substance: DILTIAZEM
     Indication: Prostate cancer metastatic
     Dosage: 360 MILLIGRAM, DAILY
     Route: 065
  3. DILTIAZEM [Interacting]
     Active Substance: DILTIAZEM
     Dosage: 480 MILLIGRAM, DAILY
     Route: 065
  4. FUROSEMIDE [Concomitant]
     Active Substance: FUROSEMIDE
     Indication: Product used for unknown indication
     Route: 065

REACTIONS (3)
  - Cardiac failure [Unknown]
  - Arrhythmia induced cardiomyopathy [Unknown]
  - Drug interaction [Unknown]
